FAERS Safety Report 5660405-8 (Version None)
Quarter: 2008Q1

REPORT INFORMATION
  Report Type: 
  Country: None (occurrence: None)
  Receive Date: 20080311
  Receipt Date: 20071017
  Transmission Date: 20080703
  Serious: No
  Sender: FDA-Public Use
  Company Number: US-BAYER-200713387BCC

PATIENT
  Age: 75 Year
  Sex: Female
  Weight: 70 kg

DRUGS (11)
  1. ALEVE [Suspect]
     Indication: ARTHRALGIA
     Route: 048
     Dates: start: 20071017
  2. LISINOPRIL [Concomitant]
  3. AMLODIPINE [Concomitant]
  4. LOVASTATIN [Concomitant]
  5. EFFEXOR [Concomitant]
  6. OMEPRAZOLE [Concomitant]
  7. MELOXICAM [Concomitant]
  8. IRON [Concomitant]
  9. VITAMIN B-12 [Concomitant]
  10. DARVOCET [Concomitant]
  11. CALTRATE [Concomitant]

REACTIONS (1)
  - ARTHRALGIA [None]
